FAERS Safety Report 9596055 (Version 1)
Quarter: 2013Q4

REPORT INFORMATION
  Report Type: Spontaneous
  Country: US (occurrence: US)
  Receive Date: 20131004
  Receipt Date: 20131004
  Transmission Date: 20140711
  Serious: Yes (Death)
  Sender: FDA-Public Use
  Company Number: US-PFIZER INC-2013283890

PATIENT
  Sex: 0

DRUGS (2)
  1. NORVASC [Suspect]
     Dosage: UNK
     Dates: start: 20041004
  2. NEURONTIN [Suspect]
     Dosage: UNK
     Dates: start: 20041004

REACTIONS (1)
  - Death [Fatal]
